FAERS Safety Report 9760222 (Version 1)
Quarter: 2013Q4

REPORT INFORMATION
  Report Type: Spontaneous
  Country: US (occurrence: US)
  Receive Date: 20131216
  Receipt Date: 20131216
  Transmission Date: 20140711
  Serious: Yes (Hospitalization)
  Sender: FDA-Public Use
  Company Number: US-GILEAD-2010-0028303

PATIENT
  Age: 45 Year
  Sex: Female
  Weight: 145.15 kg

DRUGS (18)
  1. LETAIRIS [Suspect]
     Indication: PULMONARY ARTERIAL HYPERTENSION
     Route: 048
  2. REQUIP [Concomitant]
  3. ASPIRIN [Concomitant]
  4. SPIRONOLACTONE [Concomitant]
  5. LASIX [Concomitant]
  6. ATENOLOL [Concomitant]
  7. ZAROXOLYN [Concomitant]
  8. URSODIOL [Concomitant]
  9. DECADRON [Concomitant]
  10. GLUCOPHAGE [Concomitant]
  11. GLYBURIDE [Concomitant]
  12. AMBIEN [Concomitant]
  13. TEMAZEPAM [Concomitant]
  14. HYDROMORPHONE [Concomitant]
  15. IBUPROFEN [Concomitant]
  16. TYLENOL ARTHRITIS [Concomitant]
  17. KLOR-CON [Concomitant]
  18. DEXAMETHASON [Concomitant]

REACTIONS (1)
  - Oedema [Not Recovered/Not Resolved]
